FAERS Safety Report 6374375-0 (Version None)
Quarter: 2009Q3

REPORT INFORMATION
  Report Type: 
  Country: None (occurrence: None)
  Receive Date: 20090924
  Receipt Date: 20090629
  Transmission Date: 20100115
  Serious: No
  Sender: FDA-Public Use
  Company Number: A0794333A

PATIENT
  Age: 48 Year
  Sex: Male

DRUGS (1)
  1. EPZICOM [Suspect]
     Indication: HIV INFECTION
     Dosage: 1TAB PER DAY
     Route: 048

REACTIONS (3)
  - CONDITION AGGRAVATED [None]
  - MUSCULOSKELETAL DISORDER [None]
  - PAIN [None]
